FAERS Safety Report 7037228-0 (Version None)
Quarter: 2010Q4

REPORT INFORMATION
  Report Type: 
  Country: None (occurrence: None)
  Receive Date: 20101011
  Receipt Date: 20101001
  Transmission Date: 20110411
  Serious: Yes (Hospitalization)
  Sender: FDA-Public Use
  Company Number: US-ABBOTT-10P-163-0671473-01

PATIENT
  Sex: Female
  Weight: 92 kg

DRUGS (10)
  1. HUMIRA [Suspect]
     Indication: HIDRADENITIS
     Route: 058
     Dates: start: 20091023, end: 20100903
  2. APRISO [Concomitant]
     Indication: COLITIS ULCERATIVE
     Dates: start: 20090701
  3. CEFTRIAXONE [Concomitant]
     Indication: URINARY TRACT INFECTION
     Dates: start: 20100828, end: 20100831
  4. DARVOCET [Concomitant]
     Indication: HIDRADENITIS
     Dates: start: 20090301
  5. DARVOCET [Concomitant]
     Indication: PAIN
  6. FERROUS SULFATE [Concomitant]
     Indication: ANAEMIA
     Dates: start: 20100831
  7. HYDROCORTISONE [Concomitant]
     Indication: ARTHROPOD BITE
     Dosage: APPLICATION
     Dates: start: 20100430, end: 20100516
  8. IMURAN [Concomitant]
     Indication: COLITIS ULCERATIVE
     Dates: start: 20060101, end: 20090924
  9. RED BLOOD CELLS [Concomitant]
     Indication: ANAEMIA
     Dates: start: 20100829, end: 20100829
  10. TYLENOL [Concomitant]
     Indication: URINARY TRACT INFECTION
     Dates: start: 20100831

REACTIONS (1)
  - FATIGUE [None]
